FAERS Safety Report 5627991-5 (Version None)
Quarter: 2008Q1

REPORT INFORMATION
  Report Type: 
  Country: None (occurrence: None)
  Receive Date: 20080215
  Receipt Date: 20080205
  Transmission Date: 20080703
  Serious: Yes (Other)
  Sender: FDA-Public Use
  Company Number: US-ELI_LILLY_AND_COMPANY-US200802000968

PATIENT
  Sex: Female

DRUGS (2)
  1. HUMALOG MIX 75/25 [Suspect]
     Dates: start: 20070101
  2. HUMALOG MIX 75/25 [Suspect]
     Dates: start: 20070101

REACTIONS (2)
  - LAPAROSCOPIC SURGERY [None]
  - MOBILITY DECREASED [None]
